FAERS Safety Report 20124489 (Version 1)
Quarter: 2021Q4

REPORT INFORMATION
  Report Type: Spontaneous
  Country: US (occurrence: US)
  Receive Date: 20211129
  Receipt Date: 20211129
  Transmission Date: 20220303
  Serious: No
  Sender: FDA-Public Use
  Company Number: US-TEVA-2021-US-1981572

PATIENT
  Age: 74 Year
  Sex: Male
  Weight: 68.03 kg

DRUGS (4)
  1. FEXOFENADINE [Suspect]
     Active Substance: FEXOFENADINE HYDROCHLORIDE
     Indication: Seasonal allergy
     Dosage: 240 MILLIGRAM DAILY;
     Route: 048
     Dates: start: 20211118
  2. LOSARTAN [Concomitant]
     Active Substance: LOSARTAN
  3. METOPROLOL SUCCINATE [Concomitant]
     Active Substance: METOPROLOL SUCCINATE
  4. DIAZEPAM [Concomitant]
     Active Substance: DIAZEPAM

REACTIONS (3)
  - Dizziness [Unknown]
  - Product administration error [Unknown]
  - Product administered to patient of inappropriate age [Unknown]
